FAERS Safety Report 18568065 (Version 1)
Quarter: 2020Q4

REPORT INFORMATION
  Report Type: Report from Study
  Country: FR (occurrence: FR)
  Receive Date: 20201202
  Receipt Date: 20201202
  Transmission Date: 20210114
  Serious: Yes (Death)
  Sender: FDA-Public Use
  Company Number: FR-BIOVITRUM-2020FR6346

PATIENT
  Age: 68 Year
  Sex: Male
  Weight: 75 kg

DRUGS (4)
  1. KINERET [Suspect]
     Active Substance: ANAKINRA
     Dosage: 100 MG/0.67 ML
     Route: 042
     Dates: start: 20200520, end: 20200520
  2. KINERET [Suspect]
     Active Substance: ANAKINRA
     Indication: CORONAVIRUS INFECTION
     Dosage: 100 MG/0.67 ML
     Route: 042
     Dates: start: 20200514, end: 20200519
  3. REVATIO [Concomitant]
     Active Substance: SILDENAFIL CITRATE
  4. KINERET [Suspect]
     Active Substance: ANAKINRA
     Dosage: 100 MG/0.67 ML
     Route: 042
     Dates: start: 20200521, end: 20200521

REACTIONS (2)
  - General physical health deterioration [Fatal]
  - Intestinal pseudo-obstruction [Fatal]

NARRATIVE: CASE EVENT DATE: 20200608
